FAERS Safety Report 5450179-8 (Version None)
Quarter: 2007Q3

REPORT INFORMATION
  Report Type: 
  Country: None (occurrence: None)
  Receive Date: 20070912
  Receipt Date: 20070910
  Transmission Date: 20080115
  Serious: Yes (Death)
  Sender: FDA-Public Use
  Company Number: PHBS2007CA14807

PATIENT
  Age: 37 Year
  Sex: Male

DRUGS (6)
  1. VOLTAREN [Suspect]
     Indication: ARTHRITIS
     Dosage: 75 MG, BID
     Route: 048
  2. AZATHIOPRINE [Suspect]
     Dosage: 50 MG/DAY
  3. AZATHIOPRINE [Suspect]
     Dosage: 100 MG/DAY
  4. PREDNISONE [Concomitant]
     Dosage: 40 MG, UNK
  5. PENTASA [Concomitant]
     Dosage: 1 G, QID
  6. METRONIDAZOLE [Concomitant]
     Dosage: 250 MG, QID

REACTIONS (18)
  - ABDOMINAL PAIN [None]
  - ALPHA 1 FOETOPROTEIN INCREASED [None]
  - ALPHA-1 ANTI-TRYPSIN INCREASED [None]
  - ANOREXIA [None]
  - ASPARTATE AMINOTRANSFERASE INCREASED [None]
  - BIOPSY LIVER ABNORMAL [None]
  - BLOOD ALKALINE PHOSPHATASE INCREASED [None]
  - CERULOPLASMIN INCREASED [None]
  - HAEMOGLOBIN DECREASED [None]
  - HEPATIC MASS [None]
  - HEPATIC NEOPLASM MALIGNANT NON-RESECTABLE [None]
  - HEPATOMEGALY [None]
  - INTERNATIONAL NORMALISED RATIO INCREASED [None]
  - LIVER FUNCTION TEST ABNORMAL [None]
  - LIVER TENDERNESS [None]
  - LYMPH NODES SCAN ABNORMAL [None]
  - TUMOUR MARKER INCREASED [None]
  - WEIGHT DECREASED [None]
